FAERS Safety Report 5646633-6 (Version None)
Quarter: 2008Q1

REPORT INFORMATION
  Report Type: 
  Country: None (occurrence: None)
  Receive Date: 20080303
  Receipt Date: 20080303
  Transmission Date: 20080703
  Serious: Yes (Other)
  Sender: FDA-Public Use
  Company Number: None

PATIENT
  Age: 45 Year
  Sex: Female
  Weight: 58.9676 kg

DRUGS (2)
  1. HEPARIN [Suspect]
     Indication: DEEP VEIN THROMBOSIS
     Dosage: DAILY IV BOLUS
     Route: 040
     Dates: start: 20080118, end: 20080123
  2. HEPARIN [Suspect]
     Indication: THROMBOSIS
     Dosage: DAILY IV BOLUS
     Route: 040
     Dates: start: 20080118, end: 20080123

REACTIONS (17)
  - ASTHENIA [None]
  - DEHYDRATION [None]
  - DIARRHOEA [None]
  - FATIGUE [None]
  - FEAR [None]
  - GAIT DISTURBANCE [None]
  - HEADACHE [None]
  - HEART RATE INCREASED [None]
  - HYPOTENSION [None]
  - NAUSEA [None]
  - PALLOR [None]
  - PAROSMIA [None]
  - PHARMACEUTICAL PRODUCT COMPLAINT [None]
  - SYNCOPE [None]
  - SYNCOPE VASOVAGAL [None]
  - THERAPEUTIC PRODUCT CONTAMINATION [None]
  - VOMITING [None]
